FAERS Safety Report 9854751 (Version 1)
Quarter: 2014Q1

REPORT INFORMATION
  Report Type: Spontaneous
  Country: US (occurrence: US)
  Receive Date: 20140130
  Receipt Date: 20140130
  Transmission Date: 20141002
  Serious: No
  Sender: FDA-Public Use
  Company Number: US-PFIZER INC-2014027529

PATIENT
  Age: 51 Year
  Sex: Female
  Weight: 88.44 kg

DRUGS (3)
  1. NEURONTIN [Suspect]
     Dosage: UNK
  2. FLUOXETINE [Concomitant]
     Indication: ANXIETY
     Dosage: UNK
  3. BUPROPION [Concomitant]
     Indication: ANXIETY
     Dosage: UNK

REACTIONS (2)
  - Affect lability [Unknown]
  - Crying [Unknown]
